FAERS Safety Report 13690332 (Version 1)
Quarter: 2017Q2

REPORT INFORMATION
  Report Type: Spontaneous
  Country: US (occurrence: US)
  Receive Date: 20170624
  Receipt Date: 20170624
  Transmission Date: 20170830
  Serious: Yes (Hospitalization)
  Sender: FDA-Public Use
  Company Number: None

PATIENT
  Age: 18 Year
  Sex: Female
  Weight: 79.2 kg

DRUGS (7)
  1. TRISENOX [Suspect]
     Active Substance: ARSENIC TRIOXIDE
     Dates: end: 20170505
  2. ROXICODONE [Concomitant]
     Active Substance: OXYCODONE HYDROCHLORIDE
  3. TRETINOIN (ALL TRANS RETINOIC ACID, ATRA) [Suspect]
     Active Substance: TRETINOIN
     Dates: end: 20170517
  4. PROMETHAZINE (PHENERGAN) [Concomitant]
  5. NEURONTIN [Concomitant]
     Active Substance: GABAPENTIN
  6. PRILOSEC [Concomitant]
     Active Substance: OMEPRAZOLE MAGNESIUM
  7. ZOLOFT [Concomitant]
     Active Substance: SERTRALINE HYDROCHLORIDE

REACTIONS (6)
  - Pyrexia [None]
  - Dizziness [None]
  - Heat stroke [None]
  - Vomiting [None]
  - Arthralgia [None]
  - Pain [None]

NARRATIVE: CASE EVENT DATE: 20170529
